FAERS Safety Report 5571311-1 (Version None)
Quarter: 2007Q4

REPORT INFORMATION
  Report Type: 
  Country: None (occurrence: None)
  Receive Date: 20071221
  Receipt Date: 20070612
  Transmission Date: 20080405
  Serious: No
  Sender: FDA-Public Use
  Company Number: A0655317A

PATIENT
  Age: 61 Year
  Sex: Female

DRUGS (2)
  1. FLUTICASONE PROPIONATE [Suspect]
     Dosage: 4SPR PER DAY
     Route: 045
     Dates: start: 20070602, end: 20070606
  2. ALBUTEROL [Concomitant]

REACTIONS (1)
  - HEADACHE [None]
